FAERS Safety Report 6010126-7 (Version None)
Quarter: 2008Q4

REPORT INFORMATION
  Report Type: 
  Country: None (occurrence: None)
  Receive Date: 20081215
  Receipt Date: 20081204
  Transmission Date: 20090506
  Serious: Yes (Life-Threatening, Hospitalization)
  Sender: FDA-Public Use
  Company Number: 2008SP024891

PATIENT
  Age: 90 Year
  Sex: Female

DRUGS (11)
  1. DIAFUSOR (GLYCERYL TRINITRATE) (GLYCERYL TRINITRATE) [Suspect]
     Indication: DRUG USE FOR UNKNOWN INDICATION
     Dosage: 15 MG; CUT
     Dates: end: 20021202
  2. FRAXIPARINE (NADROPARIN CALCIUM) [Suspect]
     Indication: DRUG USE FOR UNKNOWN INDICATION
     Dosage: 3 ML; IC
  3. ZOPICLONE (ZOPICLONE) [Suspect]
     Indication: DRUG USE FOR UNKNOWN INDICATION
     Dates: end: 20021202
  4. BROMAZEPAM (BROMAZEPAM) [Suspect]
     Indication: DRUG USE FOR UNKNOWN INDICATION
     Dosage: 18 MG; QD
     Dates: end: 20021202
  5. LANSOPRAZOLE [Suspect]
     Indication: DRUG USE FOR UNKNOWN INDICATION
     Dosage: 15 MG; QD
     Dates: end: 20021202
  6. MORPHINE SULFATE [Suspect]
     Indication: DRUG USE FOR UNKNOWN INDICATION
     Dosage: 10 MG; BID
     Dates: start: 20021115, end: 20021202
  7. AMIODARONE HCL [Concomitant]
  8. LASILIX [Concomitant]
  9. ACTRAPID [Concomitant]
  10. FORLAX [Concomitant]
  11. DOLIPRANE [Concomitant]

REACTIONS (4)
  - CHRONIC OBSTRUCTIVE PULMONARY DISEASE [None]
  - CONDITION AGGRAVATED [None]
  - DIABETES MELLITUS [None]
  - FALL [None]
